FAERS Safety Report 23198422 (Version 1)
Quarter: 2023Q4

REPORT INFORMATION
  Report Type: Spontaneous
  Country: US (occurrence: None)
  Receive Date: 20231117
  Receipt Date: 20231117
  Transmission Date: 20240110
  Serious: Yes (Life-Threatening, Hospitalization, Other)
  Sender: FDA-Public Use
  Company Number: 2023A261575

PATIENT
  Sex: Female

DRUGS (1)
  1. SEROQUEL [Suspect]
     Active Substance: QUETIAPINE FUMARATE
     Route: 048

REACTIONS (12)
  - Skull fracture [Unknown]
  - Craniocerebral injury [Unknown]
  - Cardiac disorder [Unknown]
  - Fall [Unknown]
  - Nasal injury [Unknown]
  - Product dose omission issue [Unknown]
  - Product dispensing error [Unknown]
  - Blood pressure abnormal [Unknown]
  - Product prescribing issue [Unknown]
  - Fatigue [Unknown]
  - Insomnia [Unknown]
  - Psychotic disorder [Unknown]
